FAERS Safety Report 7514261-3 (Version None)
Quarter: 2011Q2

REPORT INFORMATION
  Report Type: 
  Country: None (occurrence: None)
  Receive Date: 20110601
  Receipt Date: 20110524
  Transmission Date: 20111010
  Serious: Yes (Other)
  Sender: FDA-Public Use
  Company Number: US-BIOGENIDEC-2008BI029528

PATIENT
  Age: 51 Year
  Sex: Female

DRUGS (11)
  1. EXCEDRIN (MIGRAINE) [Concomitant]
  2. JANUVIA [Concomitant]
  3. LYRICA [Concomitant]
  4. MIRAPEX [Concomitant]
  5. TYSABRI [Suspect]
     Indication: MULTIPLE SCLEROSIS
     Route: 042
     Dates: start: 20080421, end: 20090415
  6. LEXAPRO [Concomitant]
     Indication: DEPRESSION
  7. MOBIC [Concomitant]
  8. ADVIL LIQUI-GELS [Concomitant]
  9. AMANTADINE HCL [Concomitant]
  10. TEGRETOL [Concomitant]
     Indication: NEURALGIA
  11. KLONOPIN [Concomitant]
     Indication: RESTLESS LEGS SYNDROME

REACTIONS (1)
  - CHRONIC LYMPHOCYTIC LEUKAEMIA [None]
